FAERS Safety Report 8904609 (Version 1)
Quarter: 2012Q4

REPORT INFORMATION
  Report Type: 
  Country: CA (occurrence: CA)
  Receive Date: 20121113
  Receipt Date: 20121113
  Transmission Date: 20130627
  Serious: Yes (Life-Threatening)
  Sender: FDA-Public Use
  Company Number: PHBS2000CA10090

PATIENT
  Age: 88 Year
  Sex: Female

DRUGS (3)
  1. EXELON [Suspect]
     Dosage: 3 mg, BID
     Dates: start: 20000907
  2. EXELON [Suspect]
     Dosage: 1.5 mg, BID
     Dates: start: 20000907
  3. EXELON [Suspect]
     Dosage: 3.5 mg, BID
     Dates: start: 20000921

REACTIONS (7)
  - Cerebrovascular accident [Not Recovered/Not Resolved]
  - Confusional state [Not Recovered/Not Resolved]
  - Anxiety [Recovered/Resolved]
  - Dizziness [Recovered/Resolved]
  - Asthenia [Recovered/Resolved]
  - Headache [Not Recovered/Not Resolved]
  - Depression [Not Recovered/Not Resolved]
